FAERS Safety Report 7657589-9 (Version None)
Quarter: 2011Q3

REPORT INFORMATION
  Report Type: 
  Country: None (occurrence: None)
  Receive Date: 20110804
  Receipt Date: 20110802
  Transmission Date: 20111222
  Serious: Yes (Hospitalization)
  Sender: FDA-Public Use
  Company Number: IT-AMGEN-ITASP2011039232

PATIENT
  Age: 72 Year
  Sex: Female

DRUGS (1)
  1. NPLATE [Suspect]
     Indication: AUTOIMMUNE THROMBOCYTOPENIA
     Dosage: UNK, QWK
     Route: 058
     Dates: start: 20110501, end: 20110719

REACTIONS (1)
  - DEEP VEIN THROMBOSIS [None]
